FAERS Safety Report 10204324 (Version 1)
Quarter: 2014Q2

REPORT INFORMATION
  Report Type: Spontaneous
  Country: US (occurrence: None)
  Receive Date: 20140527
  Receipt Date: 20140527
  Transmission Date: 20141212
  Serious: Yes (Death)
  Sender: FDA-Public Use
  Company Number: None

PATIENT
  Age: 54 Year
  Sex: Male

DRUGS (6)
  1. REGORAFENIB [Suspect]
     Indication: COLON CANCER
     Dates: start: 20121026, end: 20130206
  2. ZESTRIL [Concomitant]
  3. METFORMIN [Concomitant]
  4. GLIMEPIRIDE [Concomitant]
  5. BISOPROLOL-HCTZ [Concomitant]
  6. AMBIEN [Concomitant]

REACTIONS (7)
  - Drug-induced liver injury [None]
  - Jaundice [None]
  - Blood alkaline phosphatase increased [None]
  - Aspartate aminotransferase increased [None]
  - Alanine aminotransferase increased [None]
  - Biliary dilatation [None]
  - Bile duct obstruction [None]
